FAERS Safety Report 24098199 (Version 3)
Quarter: 2024Q3

REPORT INFORMATION
  Report Type: Spontaneous
  Country: HK (occurrence: HK)
  Receive Date: 20240716
  Receipt Date: 20240910
  Transmission Date: 20241017
  Serious: No
  Sender: PFIZER
  Company Number: HK-PFIZER INC-202400213503

PATIENT

DRUGS (1)
  1. FILGRASTIM [Suspect]
     Active Substance: FILGRASTIM
     Dosage: UNK

REACTIONS (1)
  - Syringe issue [Unknown]
